FAERS Safety Report 7480964-2 (Version None)
Quarter: 2011Q2

REPORT INFORMATION
  Report Type: 
  Country: None (occurrence: None)
  Receive Date: 20110506
  Receipt Date: 20110422
  Transmission Date: 20111010
  Serious: Yes (Other)
  Sender: FDA-Public Use
  Company Number: 2011SP018555

PATIENT
  Sex: Male

DRUGS (2)
  1. RIBAVIRIN [Suspect]
     Indication: HEPATITIS
     Dosage: PO
     Route: 048
     Dates: start: 20110202
  2. PEG-INTRON [Suspect]
     Indication: HEPATITIS
     Dates: start: 20110202

REACTIONS (17)
  - RED BLOOD CELL COUNT DECREASED [None]
  - WEIGHT DECREASED [None]
  - ANXIETY [None]
  - TACHYPHRENIA [None]
  - MUSCLE ATROPHY [None]
  - INSOMNIA [None]
  - MALAISE [None]
  - DRY MOUTH [None]
  - DEPRESSION [None]
  - WHITE BLOOD CELL COUNT DECREASED [None]
  - DISORIENTATION [None]
  - NAUSEA [None]
  - CHILLS [None]
  - ASTHENIA [None]
  - SLUGGISHNESS [None]
  - DISTURBANCE IN ATTENTION [None]
  - PYREXIA [None]
